FAERS Safety Report 10011138 (Version 1)
Quarter: 2014Q1

REPORT INFORMATION
  Report Type: Spontaneous
  Country: US (occurrence: US)
  Receive Date: 20140314
  Receipt Date: 20140314
  Transmission Date: 20141002
  Serious: Yes (Hospitalization)
  Sender: FDA-Public Use
  Company Number: US-BAYER-2014-037264

PATIENT
  Age: 24 Year
  Sex: Female
  Weight: 65.35 kg

DRUGS (7)
  1. YAZ [Suspect]
  2. YASMIN [Suspect]
  3. OCELLA [Suspect]
     Dosage: UNK
  4. CALCIUM CARBONATE [Concomitant]
  5. VICODIN [Concomitant]
  6. MARIJUANA [Concomitant]
  7. DILAUDID [Concomitant]

REACTIONS (1)
  - Pulmonary embolism [None]
